FAERS Safety Report 9111447 (Version 2)
Quarter: 2015Q1

REPORT INFORMATION
  Report Type: Spontaneous
  Country: US (occurrence: US)
  Receive Date: 20130219
  Receipt Date: 20150202
  Transmission Date: 20150721
  Serious: No
  Sender: FDA-Public Use
  Company Number: US-BRISTOL-MYERS SQUIBB COMPANY-16342248

PATIENT
  Sex: Male
  Weight: 72.56 kg

DRUGS (1)
  1. ORENCIA [Suspect]
     Active Substance: ABATACEPT

REACTIONS (2)
  - Ear infection [Unknown]
  - Bronchitis [Unknown]
